FAERS Safety Report 4939378-9 (Version None)
Quarter: 2006Q1

REPORT INFORMATION
  Report Type: 
  Country: None (occurrence: None)
  Receive Date: 20060306
  Receipt Date: 20060216
  Transmission Date: 20060701
  Serious: Yes (Other)
  Sender: FDA-Public Use
  Company Number: DE200602003379

PATIENT
  Age: 72 Year
  Sex: Female
  Weight: 73 kg

DRUGS (9)
  1. YENTREVE (DULOXETINE HYDROCHLORIDE) [Suspect]
     Indication: STRESS INCONTINENCE
     Dosage: SEE IMAGE
     Route: 048
     Dates: start: 20060212, end: 20060214
  2. YENTREVE (DULOXETINE HYDROCHLORIDE) [Suspect]
     Indication: STRESS INCONTINENCE
     Dosage: SEE IMAGE
     Route: 048
     Dates: start: 20060216
  3. MARCUMAR [Concomitant]
  4. RAMIPRIL [Concomitant]
  5. DIGOXIN [Concomitant]
  6. AMARYL /SWE/ (GLIMEPIRIDE) [Concomitant]
  7. METFORMIN HYDROCHLORIDE [Concomitant]
  8. INSUMAN COMB 25 (INSULIN HUMAN) [Concomitant]
  9. LEVOTHYROXINE SODIUM [Concomitant]

REACTIONS (4)
  - ANOREXIA [None]
  - ARRHYTHMIA [None]
  - HYPERTENSION [None]
  - TACHYCARDIA [None]
